FAERS Safety Report 9852259 (Version 1)
Quarter: 2014Q1

REPORT INFORMATION
  Report Type: Spontaneous
  Country: US (occurrence: None)
  Receive Date: 20140127
  Receipt Date: 20140127
  Transmission Date: 20141002
  Serious: Yes (Other)
  Sender: FDA-Public Use
  Company Number: ADR-2014-00095

PATIENT
  Age: 59 Year
  Sex: Male

DRUGS (1)
  1. BACLOFEN [Suspect]
     Indication: MUSCLE SPASTICITY

REACTIONS (4)
  - Constipation [None]
  - Faecaloma [None]
  - Intestinal obstruction [None]
  - Lung neoplasm malignant [None]
